FAERS Safety Report 9730795 (Version 1)
Quarter: 2013Q4

REPORT INFORMATION
  Report Type: Spontaneous
  Country: TH (occurrence: TH)
  Receive Date: 20131202
  Receipt Date: 20131202
  Transmission Date: 20140711
  Serious: Yes (Hospitalization)
  Sender: FDA-Public Use
  Company Number: TH-SA-2013SA121749

PATIENT
  Age: 80 Year
  Sex: Male

DRUGS (3)
  1. PLAVIX [Suspect]
     Indication: CEREBRAL INFARCTION
     Route: 048
     Dates: start: 20131114
  2. COENZYME Q10 [Concomitant]
  3. PREGABALIN [Concomitant]
     Dates: start: 20131118

REACTIONS (3)
  - Cardiac arrest [Unknown]
  - Brain death [Unknown]
  - Epistaxis [Unknown]
